FAERS Safety Report 23440008 (Version 2)
Quarter: 2024Q1

REPORT INFORMATION
  Report Type: Spontaneous
  Country: JP (occurrence: JP)
  Receive Date: 20240124
  Receipt Date: 20240306
  Transmission Date: 20240410
  Serious: Yes (Hospitalization)
  Sender: FDA-Public Use
  Company Number: JP-Eisai-202312849_LEN-EC_P_1

PATIENT
  Age: 7 Decade
  Sex: Female
  Weight: 45 kg

DRUGS (7)
  1. LENVIMA [Suspect]
     Active Substance: LENVATINIB
     Indication: Endometrial cancer recurrent
     Dosage: UNKNOWN DOSE AND FREQUENCY
     Route: 048
  2. KEYTRUDA [Concomitant]
     Active Substance: PEMBROLIZUMAB
     Indication: Endometrial cancer recurrent
     Route: 041
     Dates: start: 20220915
  3. LEVOTHYROXINE [Concomitant]
     Active Substance: LEVOTHYROXINE\LEVOTHYROXINE SODIUM
     Indication: Product used for unknown indication
     Dosage: UNKNOWN DOSE AND FREQUENCY
     Route: 048
  4. LEVOTHYROXINE [Concomitant]
     Active Substance: LEVOTHYROXINE\LEVOTHYROXINE SODIUM
     Route: 048
  5. LEVOTHYROXINE [Concomitant]
     Active Substance: LEVOTHYROXINE\LEVOTHYROXINE SODIUM
     Route: 048
  6. CORTRIL [Concomitant]
     Active Substance: HYDROCORTISONE
     Dosage: 10MG X 3 TABLETS/DAY (2 TABLETS IN MORNING, 1 TABLET IN EVENING)
     Route: 048
  7. CORTRIL [Concomitant]
     Active Substance: HYDROCORTISONE
     Dosage: 10MG X 4 TABLETS/DAY (3 TABLETS IN THE MORNING, 1 TABLET IN THE EVENING)
     Route: 048

REACTIONS (2)
  - Hypopituitarism [Recovering/Resolving]
  - Secondary adrenocortical insufficiency [Recovered/Resolved]
